FAERS Safety Report 8973200 (Version 2)
Quarter: 2012Q4

REPORT INFORMATION
  Report Type: 
  Country: RO (occurrence: RO)
  Receive Date: 20121218
  Receipt Date: 20121226
  Transmission Date: 20130627
  Serious: Yes (Other)
  Sender: FDA-Public Use
  Company Number: RO-PFIZER INC-2012318322

PATIENT

DRUGS (2)
  1. IBUPROFEN [Suspect]
     Indication: ANTIPYRESIS
     Dosage: UNK
  2. PARACETAMOL [Suspect]
     Indication: ANTIPYRESIS
     Dosage: UNK

REACTIONS (2)
  - Renal failure acute [Unknown]
  - Dehydration [Unknown]
